FAERS Safety Report 7661579-X (Version None)
Quarter: 2011Q3

REPORT INFORMATION
  Report Type: 
  Country: None (occurrence: None)
  Receive Date: 20110805
  Receipt Date: 20101022
  Transmission Date: 20111222
  Serious: No
  Sender: FDA-Public Use
  Company Number: US-ABBOTT-10P-163-0680368-00

PATIENT
  Sex: Female
  Weight: 63.56 kg

DRUGS (10)
  1. NIASPAN [Suspect]
     Indication: BLOOD CHOLESTEROL INCREASED
  2. AMLODIPINE [Concomitant]
     Indication: CARDIAC DISORDER
  3. NAPROXEN [Concomitant]
     Indication: ARTHRALGIA
     Dosage: TWICE A DAY, AS NEEDED
  4. METOPROLOL TARTRATE [Concomitant]
     Indication: BLOOD PRESSURE
  5. SERTRALINE HYDROCHLORIDE [Concomitant]
     Indication: DEPRESSION
     Dosage: 100MG TABLET; 1.5 TABLETS DAILY
  6. DIOVAN [Concomitant]
     Indication: BLOOD PRESSURE
  7. TRAZODONE HCL [Concomitant]
     Indication: ANXIETY
  8. OMEPRAZOLE [Concomitant]
     Indication: GASTROOESOPHAGEAL REFLUX DISEASE
  9. VITAMIN D [Concomitant]
     Indication: PRODUCT USED FOR UNKNOWN INDICATION
  10. NIASPAN [Suspect]
     Indication: BLOOD TRIGLYCERIDES INCREASED

REACTIONS (1)
  - SKIN BURNING SENSATION [None]
